FAERS Safety Report 5196420-0 (Version None)
Quarter: 2006Q4

REPORT INFORMATION
  Report Type: 
  Country: None (occurrence: None)
  Receive Date: 20061226
  Receipt Date: 20061211
  Transmission Date: 20070319
  Serious: Yes (Other)
  Sender: FDA-Public Use
  Company Number: CIP06002914

PATIENT
  Age: 75 Year
  Sex: Female
  Weight: 72.2 kg

DRUGS (2)
  1. ACTONEL [Suspect]
     Indication: BACK PAIN
     Dosage: 35 MG ONCE WEEKLY, ORAL
     Route: 048
     Dates: start: 20061026, end: 20061120
  2. INVESTIGATIONAL DRUG () INJECTION [Suspect]
     Indication: BACK PAIN
     Dosage: INJECTION NOS
     Dates: start: 20061026, end: 20061120

REACTIONS (3)
  - ABDOMINAL PAIN UPPER [None]
  - DYSPHAGIA [None]
  - MOUTH ULCERATION [None]
